FAERS Safety Report 7645112-4 (Version None)
Quarter: 2011Q3

REPORT INFORMATION
  Report Type: 
  Country: None (occurrence: None)
  Receive Date: 20110729
  Receipt Date: 20110728
  Transmission Date: 20111222
  Serious: Yes (Death)
  Sender: FDA-Public Use
  Company Number: PHHO2011AU08098

PATIENT
  Sex: Male
  Weight: 97.7 kg

DRUGS (7)
  1. CRESTOR [Concomitant]
  2. RAMIPRIL [Concomitant]
  3. IMATINIB MESYLATE [Suspect]
     Indication: CHRONIC MYELOID LEUKAEMIA
     Dosage: 600 MG DAILY
     Route: 048
     Dates: start: 20101217
  4. LANSOPRAZOLE [Concomitant]
  5. ZYPREXA [Concomitant]
     Dosage: UNK
  6. INDAPAMIDE [Concomitant]
  7. ALPRAZOLAM [Concomitant]

REACTIONS (2)
  - CARDIOMEGALY [None]
  - MYOCARDIAL ISCHAEMIA [None]
